FAERS Safety Report 8033856-4 (Version None)
Quarter: 2012Q1

REPORT INFORMATION
  Report Type: 
  Country: None (occurrence: None)
  Receive Date: 20120110
  Receipt Date: 20120106
  Transmission Date: 20120608
  Serious: Yes (Death, Other)
  Sender: FDA-Public Use
  Company Number: US-PFIZER INC-2011151676

PATIENT
  Sex: Male

DRUGS (2)
  1. CHANTIX [Suspect]
     Indication: SMOKING CESSATION THERAPY
     Dosage: 2 MG, PER DAY
     Route: 048
     Dates: start: 20090320
  2. VOLTAREN [Concomitant]
     Indication: BACK PAIN
     Dosage: UNK
     Dates: start: 20090320, end: 20090520

REACTIONS (7)
  - PARANOIA [None]
  - CHEST PAIN [None]
  - INSOMNIA [None]
  - COMPLETED SUICIDE [None]
  - EPISTAXIS [None]
  - BACK PAIN [None]
  - DELUSIONAL PERCEPTION [None]
